FAERS Safety Report 5284225-1 (Version None)
Quarter: 2007Q2

REPORT INFORMATION
  Report Type: 
  Country: None (occurrence: None)
  Receive Date: 20070403
  Receipt Date: 20070319
  Transmission Date: 20071010
  Serious: Yes (Hospitalization)
  Sender: FDA-Public Use
  Company Number: PHBS2007ES05020

PATIENT
  Age: 74 Year
  Sex: Male

DRUGS (5)
  1. CARBAMAZEPINE [Suspect]
     Indication: POST HERPETIC NEURALGIA
     Route: 065
  2. EPROSARTAN [Concomitant]
  3. PRAVASTATIN [Concomitant]
  4. ZOLPIDEM [Concomitant]
  5. TERAZOSIN HCL [Concomitant]

REACTIONS (32)
  - ALANINE AMINOTRANSFERASE INCREASED [None]
  - ASPARTATE AMINOTRANSFERASE INCREASED [None]
  - ATRIAL FIBRILLATION [None]
  - BLOOD ALKALINE PHOSPHATASE INCREASED [None]
  - BLOOD CHOLINESTERASE [None]
  - BLOOD IMMUNOGLOBULIN G INCREASED [None]
  - BLOOD PH INCREASED [None]
  - BRONCHOALVEOLAR LAVAGE [None]
  - BRONCHOSCOPY [None]
  - CELL DEATH [None]
  - CHEST X-RAY ABNORMAL [None]
  - CHOLESTASIS [None]
  - COMPUTERISED TOMOGRAM ABNORMAL [None]
  - DISORIENTATION [None]
  - DYSPNOEA [None]
  - EOSINOPHILIA [None]
  - GAMMA-GLUTAMYLTRANSFERASE INCREASED [None]
  - HALLUCINATION, VISUAL [None]
  - HEPATOMEGALY [None]
  - HYPERGAMMAGLOBULINAEMIA [None]
  - HYPERPLASIA [None]
  - HYPOVENTILATION [None]
  - LEUKOCYTOSIS [None]
  - OBLITERATIVE BRONCHIOLITIS [None]
  - PCO2 DECREASED [None]
  - PLEURAL EFFUSION [None]
  - PO2 DECREASED [None]
  - PYREXIA [None]
  - RESPIRATORY FAILURE [None]
  - RHEUMATOID FACTOR INCREASED [None]
  - TACHYCARDIA [None]
  - TACHYPNOEA [None]
